FAERS Safety Report 4627910-4 (Version None)
Quarter: 2005Q2

REPORT INFORMATION
  Report Type: 
  Country: None (occurrence: None)
  Receive Date: 20050401
  Receipt Date: 20050321
  Transmission Date: 20051028
  Serious: Yes (Hospitalization)
  Sender: FDA-Public Use
  Company Number: 2005GB00582

PATIENT
  Age: 30 Year

DRUGS (4)
  1. CRESTOR [Suspect]
     Indication: BLOOD CHOLESTEROL INCREASED
     Dosage: 10 MG PO
     Route: 048
     Dates: start: 20050310, end: 20050314
  2. BENDROFLUAZIDE [Concomitant]
  3. CLOPIDOGREL [Concomitant]
  4. THYROXINE [Concomitant]

REACTIONS (3)
  - CELLULITIS [None]
  - DRUG HYPERSENSITIVITY [None]
  - OEDEMA PERIPHERAL [None]
